FAERS Safety Report 6573309-3 (Version None)
Quarter: 2010Q1

REPORT INFORMATION
  Report Type: 
  Country: None (occurrence: None)
  Receive Date: 20100208
  Receipt Date: 20100127
  Transmission Date: 20100710
  Serious: Yes (Disabling)
  Sender: FDA-Public Use
  Company Number: PT-PFIZER INC-2010010902

PATIENT
  Age: 51 Year
  Sex: Female

DRUGS (1)
  1. AROMASIN [Suspect]
     Indication: BREAST CANCER
     Dosage: UNK
     Route: 048
     Dates: start: 20090101, end: 20100128

REACTIONS (4)
  - ARTHRALGIA [None]
  - HIRSUTISM [None]
  - HYPOAESTHESIA [None]
  - JOINT STIFFNESS [None]
